FAERS Safety Report 16994011 (Version 1)
Quarter: 2019Q4

REPORT INFORMATION
  Report Type: Spontaneous
  Country: US (occurrence: US)
  Receive Date: 20190923
  Receipt Date: 20190923
  Transmission Date: 20200122
  Serious: Yes (Other)
  Sender: FDA-Public Use
  Company Number: None

PATIENT
  Age: 71 Year
  Sex: Male
  Weight: 79.38 kg

DRUGS (4)
  1. NALTREXONE HC 50MG [Suspect]
     Active Substance: NALTREXONE HYDROCHLORIDE
     Indication: ALCOHOLISM
     Dosage: ?          QUANTITY:30 DF DOSAGE FORM;?
     Route: 048
     Dates: start: 20190910, end: 20190910
  2. LEVOTHROID [Concomitant]
     Active Substance: LEVOTHYROXINE SODIUM
  3. PRENATAL VITAMINS [Concomitant]
     Active Substance: VITAMINS
  4. NORVASTATIN [Concomitant]
     Active Substance: SIMVASTATIN

REACTIONS (4)
  - Clumsiness [None]
  - Blood pressure increased [None]
  - Feeling abnormal [None]
  - Dizziness [None]

NARRATIVE: CASE EVENT DATE: 20190910
